FAERS Safety Report 16044393 (Version 1)
Quarter: 2019Q1

REPORT INFORMATION
  Report Type: Spontaneous
  Country: GB (occurrence: GB)
  Receive Date: 20190306
  Receipt Date: 20190306
  Transmission Date: 20190418
  Serious: Yes (Hospitalization, Other)
  Sender: FDA-Public Use
  Company Number: GB-BAXTER-2019BAX004162

PATIENT
  Age: 8 Year

DRUGS (2)
  1. FUROSEMIDE 10MG/ML SOLUTION FOR INJECTION [Suspect]
     Active Substance: FUROSEMIDE
     Indication: RENAL SCAN
     Dosage: FREQUENCY: TOTAL
     Route: 065
     Dates: start: 20180910, end: 20180910
  2. FUROSEMIDE 10MG/ML SOLUTION FOR INJECTION [Suspect]
     Active Substance: FUROSEMIDE
     Indication: OFF LABEL USE

REACTIONS (4)
  - Malaise [Unknown]
  - Chest pain [Unknown]
  - Seizure [Unknown]
  - Syncope [Unknown]

NARRATIVE: CASE EVENT DATE: 20180910
